FAERS Safety Report 8217677-5 (Version None)
Quarter: 2012Q1

REPORT INFORMATION
  Report Type: 
  Country: None (occurrence: None)
  Receive Date: 20120315
  Receipt Date: 20120302
  Transmission Date: 20120608
  Serious: Yes (Other)
  Sender: FDA-Public Use
  Company Number: 2012HGS-003219

PATIENT
  Age: 27 Year
  Sex: Female
  Weight: 80 kg

DRUGS (6)
  1. KORTISON (CORTISONE ACETATE) (CORTISONE ACETATE) [Concomitant]
  2. QUENSYL (HYDROXYCHLOROQUINE SULFATE) (HYDROXYCHLOROQUINE SULFATE) [Concomitant]
  3. LIDOSOPORIN (LIDOSPORIN /00251201/) (LIDOCAINE HYDROCHLORIDE, POLYMYXI [Concomitant]
  4. PREDNISOLON (PREDNISOLONE) (PREDNISOLONE) [Concomitant]
  5. BENLYSTA [Suspect]
     Indication: SYSTEMIC LUPUS ERYTHEMATOSUS
     Dosage: 10 MG/KG, 1 IN INTRAVENOUS (NOT OTHERWISE SPECIFIED)
     Route: 042
     Dates: start: 20120111
  6. ANTI-MALARIAL DRUG (UNSPECIFIED) (ANTI-MALARIAL DRUG) [Concomitant]

REACTIONS (3)
  - DIARRHOEA HAEMORRHAGIC [None]
  - RECTAL TENESMUS [None]
  - PYREXIA [None]
